FAERS Safety Report 13674318 (Version 2)
Quarter: 2017Q3

REPORT INFORMATION
  Report Type: Spontaneous
  Country: JP (occurrence: JP)
  Receive Date: 20170621
  Receipt Date: 20170725
  Transmission Date: 20171127
  Serious: Yes (Other)
  Sender: FDA-Public Use
  Company Number: JP-VIFOR (INTERNATIONAL) INC.-VIT-2017-06522

PATIENT
  Sex: Female
  Weight: 1.82 kg

DRUGS (10)
  1. MIRCERA [Suspect]
     Active Substance: METHOXY POLYETHYLENE GLYCOL-EPOETIN BETA
     Indication: PRODUCT USED FOR UNKNOWN INDICATION
     Route: 064
  2. INSULIN DETEMIR [Concomitant]
     Active Substance: INSULIN DETEMIR
     Route: 064
  3. RITODRINE HYDROCHLORIDE [Concomitant]
     Active Substance: RITODRINE HYDROCHLORIDE
     Route: 064
  4. NIFEDIPINE. [Concomitant]
     Active Substance: NIFEDIPINE
     Route: 064
  5. BETAMETHASONE SODIUM PHOSPHATE [Concomitant]
     Active Substance: BETAMETHASONE SODIUM PHOSPHATE
     Route: 064
  6. HYDRALAZINE HYDROCHLORIDE. [Concomitant]
     Active Substance: HYDRALAZINE HYDROCHLORIDE
     Dosage: NON-DIALYSIS DAY
     Route: 064
  7. INSULIN GLARGINE [Concomitant]
     Active Substance: INSULIN GLARGINE
     Route: 064
  8. INSULIN LISPRO [Concomitant]
     Active Substance: INSULIN LISPRO
     Route: 064
  9. HYDRALAZINE HYDROCHLORIDE. [Concomitant]
     Active Substance: HYDRALAZINE HYDROCHLORIDE
     Dosage: DIALYSIS DAY
     Route: 064
  10. INSULIN ASPART [Concomitant]
     Active Substance: INSULIN ASPART
     Route: 064

REACTIONS (6)
  - Coarctation of the aorta [Unknown]
  - Ventricular septal defect [Unknown]
  - Foetal distress syndrome [Unknown]
  - Cardiac failure [Unknown]
  - Foetal exposure during pregnancy [Unknown]
  - Bicuspid aortic valve [Unknown]
